FAERS Safety Report 8765134 (Version 2)
Quarter: 2012Q4

REPORT INFORMATION
  Report Type: 
  Country: US (occurrence: US)
  Receive Date: 20120903
  Receipt Date: 20121120
  Transmission Date: 20130627
  Serious: Yes (Hospitalization)
  Sender: FDA-Public Use
  Company Number: US-BIOGENIDEC-2012BI034081

PATIENT
  Age: 42 Year
  Sex: Female

DRUGS (2)
  1. AVONEX [Suspect]
     Indication: MULTIPLE SCLEROSIS
     Route: 030
     Dates: start: 20120803
  2. CLONAZEPAM [Concomitant]
     Indication: TREMOR

REACTIONS (2)
  - Multiple sclerosis relapse [Recovered/Resolved]
  - Blood glucose increased [Recovered/Resolved]
